FAERS Safety Report 13664725 (Version 2)
Quarter: 2017Q3

REPORT INFORMATION
  Report Type: Report from Study
  Country: CL (occurrence: CL)
  Receive Date: 20170619
  Receipt Date: 20170705
  Transmission Date: 20171127
  Serious: Yes (Other)
  Sender: FDA-Public Use
  Company Number: CL-EMD SERONO-E2B_80071930

PATIENT
  Sex: Female

DRUGS (2)
  1. SAIZEN [Suspect]
     Active Substance: SOMATROPIN
     Dosage: SAIZEN LIQUID 20MG (60UI), RESTARTED ON AN UNKNOWN DATE
     Route: 058
     Dates: start: 2017
  2. SAIZEN [Suspect]
     Active Substance: SOMATROPIN
     Indication: TURNER^S SYNDROME
     Route: 058
     Dates: start: 20161221, end: 201702

REACTIONS (2)
  - Blood glucose increased [Unknown]
  - Diabetic coma [Recovering/Resolving]

NARRATIVE: CASE EVENT DATE: 2017
